FAERS Safety Report 4919428-6 (Version None)
Quarter: 2006Q1

REPORT INFORMATION
  Report Type: 
  Country: None (occurrence: None)
  Receive Date: 20060222
  Receipt Date: 20051005
  Transmission Date: 20060701
  Serious: Yes (Hospitalization, Disabling, Other)
  Sender: FDA-Public Use
  Company Number: US-MERCK-0510USA04604

PATIENT
  Age: 32 Year
  Sex: Male
  Weight: 86 kg

DRUGS (5)
  1. VIOXX [Suspect]
     Indication: BACK PAIN
     Route: 048
     Dates: start: 20021101, end: 20041001
  2. VIOXX [Suspect]
     Route: 065
  3. SOMA [Concomitant]
     Route: 065
  4. VICODIN [Concomitant]
     Route: 065
  5. PAXIL CR [Concomitant]
     Route: 065

REACTIONS (14)
  - CUBITAL TUNNEL SYNDROME [None]
  - DEPRESSION [None]
  - HEADACHE [None]
  - INTERVERTEBRAL DISC PROTRUSION [None]
  - MYOFASCIAL PAIN SYNDROME [None]
  - NECK INJURY [None]
  - NEURITIS [None]
  - PELVIC VENOUS THROMBOSIS [None]
  - PLANTAR FASCIITIS [None]
  - PULMONARY EMBOLISM [None]
  - RADICULITIS LUMBOSACRAL [None]
  - SPINAL DISORDER [None]
  - TENOSYNOVITIS [None]
  - VERTEBRAL INJURY [None]
